FAERS Safety Report 8809758 (Version 1)
Quarter: 2012Q4

REPORT INFORMATION
  Report Type: 
  Country: US (occurrence: US)
  Receive Date: 20120926
  Receipt Date: 20120926
  Transmission Date: 20130627
  Serious: No
  Sender: FDA-Public Use
  Company Number: US-ASTRAZENECA-2012SE73921

PATIENT

DRUGS (1)
  1. SYMBICORT PMDI [Suspect]
     Dosage: 1604.5
     Route: 055
     Dates: start: 20070914

REACTIONS (2)
  - Acne [Unknown]
  - Pain [Unknown]
